FAERS Safety Report 9750023 (Version 2)
Quarter: 2013Q4

REPORT INFORMATION
  Report Type: Spontaneous
  Country: DE (occurrence: DE)
  Receive Date: 20131212
  Receipt Date: 20131212
  Transmission Date: 20140711
  Serious: No
  Sender: FDA-Public Use
  Company Number: DE-GILEAD-DE-CVT-090651

PATIENT
  Age: 83 Year
  Sex: Male

DRUGS (4)
  1. RANEXA [Suspect]
     Indication: PRODUCT USED FOR UNKNOWN INDICATION
     Route: 048
     Dates: start: 20090926, end: 20090930
  2. PLAVIX [Concomitant]
     Route: 048
  3. SIMVASTATIN [Concomitant]
     Route: 048
  4. ISOKET [Concomitant]
     Route: 048

REACTIONS (2)
  - Chest pain [Recovered/Resolved]
  - Paraesthesia [Recovered/Resolved]
